FAERS Safety Report 8272978-X (Version None)
Quarter: 2012Q2

REPORT INFORMATION
  Report Type: 
  Country: None (occurrence: None)
  Receive Date: 20120411
  Receipt Date: 20120330
  Transmission Date: 20120825
  Serious: Yes (Hospitalization)
  Sender: FDA-Public Use
  Company Number: NL-JNJFOC-20120303384

PATIENT
  Sex: Male
  Weight: 104 kg

DRUGS (10)
  1. AMLODIPINE [Concomitant]
     Route: 065
  2. REMICADE [Suspect]
     Route: 042
     Dates: start: 20120201, end: 20120201
  3. RITUXIMAB [Suspect]
     Indication: PSORIASIS
     Route: 065
  4. OMEPRAZOLE [Concomitant]
     Route: 065
  5. REMICADE [Suspect]
     Indication: PSORIATIC ARTHROPATHY
     Route: 042
     Dates: end: 20120226
  6. REMICADE [Suspect]
     Indication: PSORIASIS
     Route: 042
     Dates: end: 20120226
  7. GALVUS [Concomitant]
     Route: 065
  8. REMICADE [Suspect]
     Route: 042
     Dates: start: 20120201, end: 20120201
  9. REMICADE [Suspect]
     Route: 042
     Dates: start: 20120117
  10. REMICADE [Suspect]
     Route: 042
     Dates: start: 20120117

REACTIONS (3)
  - DEHYDRATION [None]
  - RENAL FAILURE [None]
  - GASTRITIS [None]
